FAERS Safety Report 14691315 (Version 1)
Quarter: 2018Q1

REPORT INFORMATION
  Report Type: Spontaneous
  Country: US (occurrence: US)
  Receive Date: 20180327
  Receipt Date: 20180327
  Transmission Date: 20180509
  Serious: Yes (Hospitalization, Other)
  Sender: FDA-Public Use
  Company Number: None

PATIENT
  Age: 55 Year
  Sex: Female
  Weight: 83.46 kg

DRUGS (27)
  1. SCOPOLAMINE [Suspect]
     Active Substance: SCOPOLAMINE
     Indication: NAUSEA
     Dosage: FREQUENCY - APPLY 1 PATCH BEHIND EAR 1 HR BEFORE EFFECT ?REAPPLY EVERY 3 DAY PRN
     Route: 061
     Dates: start: 20160824, end: 20171227
  2. ATORVASTATIN [Concomitant]
     Active Substance: ATORVASTATIN
  3. LAMOTRIGINE. [Concomitant]
     Active Substance: LAMOTRIGINE
  4. LEVOFLOXACIN. [Concomitant]
     Active Substance: LEVOFLOXACIN
  5. PHENTERMINE. [Concomitant]
     Active Substance: PHENTERMINE
  6. IBU [Concomitant]
     Active Substance: IBUPROFEN
  7. NARATRIPTAN [Concomitant]
     Active Substance: NARATRIPTAN HYDROCHLORIDE
  8. PROPRANOLOL [Concomitant]
     Active Substance: PROPRANOLOL HYDROCHLORIDE
  9. CLOTRIMAZOLE. [Concomitant]
     Active Substance: CLOTRIMAZOLE
  10. OXYCODONE [Concomitant]
     Active Substance: OXYCODONE
  11. ASPIRIN 81 MG [Concomitant]
     Active Substance: ASPIRIN
  12. LYRICA [Concomitant]
     Active Substance: PREGABALIN
  13. METRONIDAZOLE. [Concomitant]
     Active Substance: METRONIDAZOLE
  14. ALBUTEROL SULFATE. [Concomitant]
     Active Substance: ALBUTEROL SULFATE
  15. ALPRAZOLAM. [Concomitant]
     Active Substance: ALPRAZOLAM
  16. CITALOPRAM [Concomitant]
     Active Substance: CITALOPRAM HYDROBROMIDE
  17. OMEPRAZOLE. [Concomitant]
     Active Substance: OMEPRAZOLE
  18. POTASSIUM CITRATE ER 15 MEQ, 15 MEQ [Concomitant]
     Active Substance: POTASSIUM CITRATE
  19. RISPERIDONE. [Concomitant]
     Active Substance: RISPERIDONE
  20. VALACYCLOVIR [Concomitant]
     Active Substance: VALACYCLOVIR HYDROCHLORIDE
  21. METOCLOPRAMIDE. [Concomitant]
     Active Substance: METOCLOPRAMIDE
  22. PROMETHAZINE [Concomitant]
     Active Substance: PROMETHAZINE\PROMETHAZINE HYDROCHLORIDE
  23. GABAPENTIN. [Concomitant]
     Active Substance: GABAPENTIN
  24. MAGNESIUM OXIDE. [Concomitant]
     Active Substance: MAGNESIUM OXIDE
  25. PROMETHAZINE-CODEINE SYRUP [Concomitant]
  26. ROPINIROLE. [Concomitant]
     Active Substance: ROPINIROLE
  27. VENTOLIN HFA [Concomitant]
     Active Substance: ALBUTEROL SULFATE

REACTIONS (5)
  - Drug ineffective [None]
  - Product substitution issue [None]
  - Migraine [None]
  - Vomiting [None]
  - Therapeutic response changed [None]

NARRATIVE: CASE EVENT DATE: 201803
